FAERS Safety Report 9641633 (Version 3)
Quarter: 2013Q4

REPORT INFORMATION
  Report Type: Spontaneous
  Country: JP (occurrence: JP)
  Receive Date: 20131023
  Receipt Date: 20131203
  Transmission Date: 20140711
  Serious: Yes (Hospitalization)
  Sender: FDA-Public Use
  Company Number: JP-GLAXOSMITHKLINE-B0933766A

PATIENT
  Age: 73 Year
  Sex: Female

DRUGS (8)
  1. REQUIP [Suspect]
     Indication: PARKINSON^S DISEASE
     Dosage: 2MG PER DAY
     Route: 048
  2. REQUIP [Suspect]
     Indication: PARKINSON^S DISEASE
     Route: 048
     Dates: end: 20131010
  3. REQUIP [Suspect]
     Indication: PARKINSON^S DISEASE
     Dosage: 8MG PER DAY
     Route: 048
     Dates: start: 20131011, end: 20131015
  4. EC DOPARL [Concomitant]
     Dosage: 1IUAX TWICE PER DAY
     Route: 048
     Dates: start: 20111017
  5. EDIROL [Concomitant]
     Dosage: .5MCG PER DAY
     Route: 048
     Dates: start: 20130815
  6. ACTONEL [Concomitant]
     Route: 048
     Dates: start: 20130815
  7. OLMETEC [Concomitant]
     Dosage: 20MG TWICE PER DAY
     Route: 048
  8. NORVASC [Concomitant]
     Dosage: 2.5MG PER DAY
     Route: 048

REACTIONS (4)
  - Abasia [Recovered/Resolved]
  - Hallucination [Recovered/Resolved]
  - Bedridden [Recovered/Resolved]
  - Anxiety [Recovered/Resolved]
